FAERS Safety Report 12164942 (Version 2)
Quarter: 2016Q1

REPORT INFORMATION
  Report Type: Report from Study
  Country: US (occurrence: US)
  Receive Date: 20160309
  Receipt Date: 20160311
  Transmission Date: 20160526
  Serious: No
  Sender: FDA-Public Use
  Company Number: US-ABBVIE-15P-163-1508139-00

PATIENT
  Sex: Female
  Weight: 72.64 kg

DRUGS (4)
  1. ESTROGEN [Suspect]
     Active Substance: ESTRONE\SUS SCROFA OVARY
     Indication: BLOOD OESTROGEN DECREASED
     Route: 048
     Dates: start: 2015, end: 2015
  2. ZOLOFT [Concomitant]
     Active Substance: SERTRALINE HYDROCHLORIDE
     Indication: EMOTIONAL DISORDER
     Route: 065
     Dates: start: 2014
  3. DEPO-PROVERA [Concomitant]
     Active Substance: MEDROXYPROGESTERONE ACETATE
     Indication: PRODUCT USED FOR UNKNOWN INDICATION
     Route: 065
  4. LUPRON DEPOT [Suspect]
     Active Substance: LEUPROLIDE ACETATE
     Indication: ENDOMETRIOSIS
     Dosage: 3 MONTH
     Route: 030
     Dates: start: 2014

REACTIONS (6)
  - Blood oestrogen increased [Recovered/Resolved]
  - Emotional disorder [Recovered/Resolved]
  - Anger [Recovered/Resolved]
  - Menstruation irregular [Recovered/Resolved]
  - Blood oestrogen decreased [Recovered/Resolved]
  - Metrorrhagia [Recovered/Resolved]

NARRATIVE: CASE EVENT DATE: 2014
